FAERS Safety Report 5140337-4 (Version None)
Quarter: 2006Q4

REPORT INFORMATION
  Report Type: 
  Country: None (occurrence: None)
  Receive Date: 20061024
  Receipt Date: 20061011
  Transmission Date: 20070319
  Serious: Yes (Hospitalization)
  Sender: FDA-Public Use
  Company Number: US200610002172

PATIENT
  Sex: Female

DRUGS (2)
  1. HUMALOG MIX 75/25 [Suspect]
     Indication: DRUG USE FOR UNKNOWN INDICATION
     Dates: start: 20020101
  2. HUMALOG MIX 25L / 75NPL PEN (HUMALOG MIX 25L / 75NPL PEN) [Concomitant]

REACTIONS (4)
  - BACK PAIN [None]
  - COMPRESSION FRACTURE [None]
  - FISTULA [None]
  - SPEECH DISORDER [None]
